FAERS Safety Report 9300085 (Version 1)
Quarter: 2012Q4

REPORT INFORMATION
  Report Type: Spontaneous
  Country: FR (occurrence: None)
  Receive Date: 20121107
  Receipt Date: 20121107
  Transmission Date: 20130627
  Serious: Yes (Other)
  Sender: FDA-Public Use
  Company Number: 217990

PATIENT
  Age: 57 Year
  Sex: Female
  Weight: 74 kg

DRUGS (3)
  1. INNOHEP [Suspect]
     Indication: DVT
     Route: 058
     Dates: start: 20120529, end: 20120605
  2. LEVOTHYROX (LEVOTHYROXINE SODIUM) [Concomitant]
  3. LYPANTHYL (FENOFIBRATE) [Concomitant]

REACTIONS (1)
  - Back pain [None]
